FAERS Safety Report 12181398 (Version 1)
Quarter: 2016Q1

REPORT INFORMATION
  Report Type: Report from Study
  Country: US (occurrence: US)
  Receive Date: 20160315
  Receipt Date: 20160315
  Transmission Date: 20160526
  Serious: No
  Sender: FDA-Public Use
  Company Number: US-AMGEN-USASP2016029888

PATIENT
  Age: 63 Year
  Sex: Female

DRUGS (1)
  1. ENBREL [Suspect]
     Active Substance: ETANERCEPT
     Indication: RHEUMATOID ARTHRITIS
     Dosage: 50 MG, QWK
     Route: 065
     Dates: start: 201401, end: 201602

REACTIONS (1)
  - Nasopharyngitis [Unknown]

NARRATIVE: CASE EVENT DATE: 20160305
